FAERS Safety Report 13615796 (Version 1)
Quarter: 2017Q2

REPORT INFORMATION
  Report Type: Spontaneous
  Country: US (occurrence: US)
  Receive Date: 20170605
  Receipt Date: 20170605
  Transmission Date: 20170830
  Serious: Yes (Life-Threatening)
  Sender: FDA-Public Use
  Company Number: None

PATIENT
  Age: 69 Year
  Sex: Male
  Weight: 85.5 kg

DRUGS (1)
  1. WARFARIN [Suspect]
     Active Substance: WARFARIN
     Dates: end: 20160719

REACTIONS (5)
  - Haemodynamic instability [None]
  - Haemorrhage [None]
  - Tracheostomy malfunction [None]
  - Thrombosis [None]
  - Obstructive airways disorder [None]

NARRATIVE: CASE EVENT DATE: 20160721
